FAERS Safety Report 26075581 (Version 1)
Quarter: 2025Q4

REPORT INFORMATION
  Report Type: Spontaneous
  Country: EU (occurrence: EU)
  Receive Date: 20251121
  Receipt Date: 20251121
  Transmission Date: 20260118
  Serious: Yes (Hospitalization)
  Sender: TEVA
  Company Number: None

PATIENT
  Age: 46 Year
  Sex: Female
  Weight: 49.9 kg

DRUGS (1)
  1. IMATINIB [Suspect]
     Active Substance: IMATINIB
     Indication: Gastrointestinal stromal tumour
     Dosage: IMATINIB TEVA
     Route: 048
     Dates: start: 20251014, end: 20251025

REACTIONS (7)
  - Rash maculo-papular [Recovered/Resolved]
  - Hepatic cytolysis [Recovered/Resolved]
  - Thrombocytopenia [Recovered/Resolved]
  - Agranulocytosis [Recovered/Resolved]
  - Lymphopenia [Recovered/Resolved]
  - Face oedema [Recovered/Resolved]
  - Monocytopenia [Recovered/Resolved]

NARRATIVE: CASE EVENT DATE: 20241023
